FAERS Safety Report 15658126 (Version 1)
Quarter: 2018Q4

REPORT INFORMATION
  Report Type: Spontaneous
  Country: CZ (occurrence: CZ)
  Receive Date: 20181126
  Receipt Date: 20181126
  Transmission Date: 20190205
  Serious: Yes (Death, Other)
  Sender: FDA-Public Use
  Company Number: CZ-SANIK-2018SA165214AA

PATIENT
  Age: 75 Year
  Sex: Female

DRUGS (2)
  1. SEFOTAK [Suspect]
     Active Substance: CEFOTAXIME SODIUM
     Route: 065
  2. AMPICILLIN [Suspect]
     Active Substance: AMPICILLIN
     Indication: PRODUCT USED FOR UNKNOWN INDICATION
     Route: 065

REACTIONS (4)
  - Coma [Unknown]
  - Multiple organ dysfunction syndrome [Unknown]
  - Septic shock [Unknown]
  - Death [Fatal]
